FAERS Safety Report 11652524 (Version 3)
Quarter: 2015Q4

REPORT INFORMATION
  Report Type: Report from Study
  Country: CA (occurrence: CA)
  Receive Date: 20151022
  Receipt Date: 20151230
  Transmission Date: 20160304
  Serious: Yes (Hospitalization)
  Sender: FDA-Public Use
  Company Number: CA-JNJFOC-20150815326

PATIENT
  Age: 54 Year
  Sex: Male
  Weight: 84.9 kg

DRUGS (2)
  1. REMICADE [Suspect]
     Active Substance: INFLIXIMAB
     Indication: CROHN^S DISEASE
     Dosage: 52 WEEKS
     Route: 042
     Dates: start: 20110608
  2. REMICADE [Suspect]
     Active Substance: INFLIXIMAB
     Indication: CROHN^S DISEASE
     Route: 042
     Dates: start: 20140517

REACTIONS (9)
  - Abdominal pain [Recovered/Resolved]
  - Dehydration [Unknown]
  - Endodontic procedure [Unknown]
  - General physical health deterioration [Recovering/Resolving]
  - Diarrhoea [Unknown]
  - Constipation [Not Recovered/Not Resolved]
  - Abscess oral [Recovering/Resolving]
  - Urinary tract infection [Recovered/Resolved]
  - Crohn^s disease [Recovering/Resolving]

NARRATIVE: CASE EVENT DATE: 20150831
